FAERS Safety Report 7493920-5 (Version None)
Quarter: 2011Q2

REPORT INFORMATION
  Report Type: 
  Country: None (occurrence: None)
  Receive Date: 20110513
  Receipt Date: 20110428
  Transmission Date: 20111010
  Serious: Yes (Hospitalization)
  Sender: FDA-Public Use
  Company Number: 11-262

PATIENT
  Age: 63 Year
  Sex: Male

DRUGS (12)
  1. LANSOPRAZOLE [Concomitant]
  2. FENTANYL [Concomitant]
  3. ENOXAPARIN SODIUM [Concomitant]
  4. AOLADEX [Concomitant]
  5. IBUPROFEN [Suspect]
     Indication: BACK PAIN
     Dates: start: 20100514
  6. GENATOSAN MULTIVIATMINS [Concomitant]
  7. STUDY DRUG SUNITINIB/PLACEBO [Suspect]
     Indication: PROSTATE CANCER
     Dosage: 25 MG
     Route: 048
     Dates: start: 20090905, end: 20100413
  8. CYCLIZINE [Concomitant]
  9. MOVIPREP [Concomitant]
  10. ACETAMINOPHEN [Concomitant]
  11. OXYCODONE HCL [Concomitant]
  12. PREDNISONE [Suspect]
     Indication: PROSTATE CANCER
     Dosage: 5 MG (2X/DAY)
     Route: 048
     Dates: start: 20090904, end: 20100517

REACTIONS (1)
  - VOMITING [None]
